FAERS Safety Report 9305433 (Version 1)
Quarter: 2013Q2

REPORT INFORMATION
  Report Type: Spontaneous
  Country: US (occurrence: US)
  Receive Date: 20130523
  Receipt Date: 20130523
  Transmission Date: 20140414
  Serious: Yes (Other)
  Sender: FDA-Public Use
  Company Number: US-SANOFI-AVENTIS-2013SA051520

PATIENT
  Age: 81 Year
  Sex: Female

DRUGS (1)
  1. ALLEGRA [Suspect]
     Indication: SINUS DISORDER
     Dosage: THERAPY START DATE - FOR A WHILE
     Route: 048

REACTIONS (1)
  - Bronchitis [Not Recovered/Not Resolved]
